FAERS Safety Report 13390822 (Version 3)
Quarter: 2017Q3

REPORT INFORMATION
  Report Type: Report from Study
  Country: AU (occurrence: AU)
  Receive Date: 20170331
  Receipt Date: 20170717
  Transmission Date: 20171127
  Serious: Yes (Other)
  Sender: FDA-Public Use
  Company Number: AU-REGENERON PHARMACEUTICALS, INC.-2017-13822

PATIENT

DRUGS (1)
  1. EYLEA [Suspect]
     Active Substance: AFLIBERCEPT
     Indication: RETINAL VEIN OCCLUSION
     Dosage: UNK UNK, Q6WK IN LEFT EYE
     Route: 031
     Dates: start: 20151030

REACTIONS (3)
  - Malaise [Unknown]
  - Macular degeneration [Unknown]
  - Sinus congestion [Unknown]
